FAERS Safety Report 5409628-3 (Version None)
Quarter: 2007Q3

REPORT INFORMATION
  Report Type: 
  Country: None (occurrence: None)
  Receive Date: 20070807
  Receipt Date: 20070807
  Transmission Date: 20080115
  Serious: Yes (Other)
  Sender: FDA-Public Use
  Company Number: None

PATIENT
  Sex: Female
  Weight: 7.2576 kg

DRUGS (4)
  1. AZITHROMYCIN [Suspect]
     Indication: UPPER RESPIRATORY TRACT INFECTION
     Dosage: PO
     Route: 048
     Dates: start: 20070702, end: 20070707
  2. ALBUTEROL [Concomitant]
  3. PREDNISOLONE SYRUP [Concomitant]
  4. NYSTATIN TOPICAL CREAM [Concomitant]

REACTIONS (1)
  - STEVENS-JOHNSON SYNDROME [None]
